FAERS Safety Report 9915681 (Version 1)
Quarter: 2014Q1

REPORT INFORMATION
  Report Type: Spontaneous
  Country: US (occurrence: None)
  Receive Date: 20140219
  Receipt Date: 20140219
  Transmission Date: 20141002
  Serious: Yes (Disabling)
  Sender: FDA-Public Use
  Company Number: None

PATIENT
  Age: 61 Year
  Sex: Female
  Weight: 66.23 kg

DRUGS (3)
  1. LEVOXYL [Suspect]
     Indication: THYROID DISORDER
     Route: 048
     Dates: start: 1991, end: 201308
  2. SYNTHROID [Concomitant]
  3. D-3 [Concomitant]

REACTIONS (8)
  - Memory impairment [None]
  - Weight increased [None]
  - Fatigue [None]
  - Nail discolouration [None]
  - Onychoclasis [None]
  - Skin disorder [None]
  - Depression [None]
  - Apathy [None]
